FAERS Safety Report 7968759-4 (Version None)
Quarter: 2011Q4

REPORT INFORMATION
  Report Type: 
  Country: None (occurrence: None)
  Receive Date: 20111209
  Receipt Date: 20111129
  Transmission Date: 20120403
  Serious: Yes (Hospitalization)
  Sender: FDA-Public Use
  Company Number: SE-ABBOTT-11P-150-0879106-00

PATIENT

DRUGS (1)
  1. HUMIRA [Suspect]
     Indication: COLITIS MICROSCOPIC
     Route: 058

REACTIONS (4)
  - ABDOMINAL PAIN [None]
  - VOMITING [None]
  - DIARRHOEA [None]
  - HYPOKALAEMIA [None]
